FAERS Safety Report 13868712 (Version 5)
Quarter: 2017Q4

REPORT INFORMATION
  Report Type: Spontaneous
  Country: US (occurrence: US)
  Receive Date: 20170815
  Receipt Date: 20171027
  Transmission Date: 20180320
  Serious: Yes (Other)
  Sender: FDA-Public Use
  Company Number: US-PFIZER INC-2017347896

PATIENT
  Age: 78 Year
  Sex: Female

DRUGS (14)
  1. IBRANCE [Suspect]
     Active Substance: PALBOCICLIB
     Indication: BREAST CANCER
     Dosage: 100 MG, CYCLIC (1 CAPSULE, ONCE DAILY WITH FOOD FOR 21 DAYS, THEN 7 DAYS OFF)
     Route: 048
     Dates: start: 201603
  2. ERYTHROMYCIN. [Concomitant]
     Active Substance: ERYTHROMYCIN
     Dosage: UNK
  3. TOBRAMYCIN AND DEXAMETHASONE [Concomitant]
     Active Substance: DEXAMETHASONE\TOBRAMYCIN
     Dosage: UNK
  4. VIGAMOX [Concomitant]
     Active Substance: MOXIFLOXACIN HYDROCHLORIDE
     Dosage: UNK
  5. FOLIC ACID. [Concomitant]
     Active Substance: FOLIC ACID
     Dosage: UNK
  6. PERCOCET /00446701/ [Concomitant]
     Active Substance: ACETAMINOPHEN\OXYCODONE HYDROCHLORIDE\OXYCODONE TEREPHTHALATE
     Dosage: UNK
  7. OFLOXACIN HYDROCHLORIDE [Concomitant]
     Active Substance: OFLOXACIN HYDROCHLORIDE
     Dosage: UNK
     Route: 047
  8. RESTASIS [Concomitant]
     Active Substance: CYCLOSPORINE
     Dosage: UNK
  9. WARFARIN [Concomitant]
     Active Substance: WARFARIN
     Dosage: 1 MG, UNK
  10. LATANOPROST. [Concomitant]
     Active Substance: LATANOPROST
     Dosage: UNK
  11. IBRANCE [Suspect]
     Active Substance: PALBOCICLIB
     Indication: BREAST CANCER METASTATIC
     Dosage: 100 MG, CYCLIC (1 CAPSULE, ONCE DAILY WITH FOOD FOR 21 DAYS, THEN 7 DAYS OFF)
     Route: 048
  12. ANASTROZOLE. [Concomitant]
     Active Substance: ANASTROZOLE
     Dosage: 1 MG, UNK
  13. MINOCYCLINE HCL [Concomitant]
     Active Substance: MINOCYCLINE HYDROCHLORIDE
     Dosage: UNK
  14. OFLOXACIN. [Concomitant]
     Active Substance: OFLOXACIN
     Dosage: UNK

REACTIONS (7)
  - Haemorrhage [Unknown]
  - Neutropenia [Unknown]
  - Neuropathy peripheral [Not Recovered/Not Resolved]
  - Headache [Unknown]
  - Dyspnoea [Not Recovered/Not Resolved]
  - Limb discomfort [Unknown]
  - Nausea [Not Recovered/Not Resolved]

NARRATIVE: CASE EVENT DATE: 201604
